FAERS Safety Report 5626131-6 (Version None)
Quarter: 2008Q1

REPORT INFORMATION
  Report Type: 
  Country: None (occurrence: None)
  Receive Date: 20080213
  Receipt Date: 20080213
  Transmission Date: 20080703
  Serious: Yes (Life-Threatening, Hospitalization)
  Sender: FDA-Public Use
  Company Number: None

PATIENT
  Age: 3 Year
  Sex: Male
  Weight: 15.8759 kg

DRUGS (1)
  1. BOTOX [Suspect]
     Dosage: UNSURE

REACTIONS (5)
  - COGNITIVE DISORDER [None]
  - GRAND MAL CONVULSION [None]
  - INFLUENZA [None]
  - MENTAL IMPAIRMENT [None]
  - RESPIRATORY SYNCYTIAL VIRUS INFECTION [None]
